FAERS Safety Report 17515972 (Version 1)
Quarter: 2020Q1

REPORT INFORMATION
  Report Type: Spontaneous
  Country: GB (occurrence: GB)
  Receive Date: 20200309
  Receipt Date: 20200309
  Transmission Date: 20200409
  Serious: Yes (Hospitalization, Disabling)
  Sender: FDA-Public Use
  Company Number: GB-PFIZER INC-2020096781

PATIENT
  Age: 43 Year
  Sex: Female

DRUGS (2)
  1. PHENYTOIN SODIUM. [Suspect]
     Active Substance: PHENYTOIN SODIUM
     Dosage: UNKNOWN
     Route: 042
  2. TEPHINE [Interacting]
     Active Substance: BUPRENORPHINE HYDROCHLORIDE
     Indication: EPILEPSY
     Dosage: 400 UG, UNK

REACTIONS (5)
  - Migraine [Recovered/Resolved]
  - Drug interaction [Unknown]
  - Dyskinesia [Recovered/Resolved]
  - Epilepsy [Not Recovered/Not Resolved]
  - Aphasia [Recovered/Resolved]
